FAERS Safety Report 17722788 (Version 1)
Quarter: 2020Q2

REPORT INFORMATION
  Report Type: Spontaneous
  Country: CA (occurrence: CA)
  Receive Date: 20200429
  Receipt Date: 20200429
  Transmission Date: 20200714
  Serious: Yes (Hospitalization, Disabling, Other)
  Sender: FDA-Public Use
  Company Number: CA-BAYER-2020-071535

PATIENT
  Age: 35 Year
  Sex: Female
  Weight: 123 kg

DRUGS (1)
  1. MIRENA [Suspect]
     Active Substance: LEVONORGESTREL
     Indication: MENORRHAGIA
     Dosage: 20 ?G PER DAY CONTINUOUSLY
     Route: 015

REACTIONS (4)
  - Ultrasound uterus abnormal [Unknown]
  - Abdominal pain lower [Unknown]
  - Embedded device [Unknown]
  - Hysterectomy [Unknown]
